FAERS Safety Report 12558347 (Version 1)
Quarter: 2016Q3

REPORT INFORMATION
  Report Type: Spontaneous
  Country: US (occurrence: US)
  Receive Date: 20160714
  Receipt Date: 20160714
  Transmission Date: 20161109
  Serious: No
  Sender: FDA-Public Use
  Company Number: US-GALDERMA-US16002969

PATIENT
  Sex: Female

DRUGS (2)
  1. SOOLANTRA [Suspect]
     Active Substance: IVERMECTIN
     Indication: DERMATITIS
     Dosage: 1%
     Route: 061
     Dates: start: 2016
  2. SOOLANTRA [Suspect]
     Active Substance: IVERMECTIN
     Indication: DERMATITIS
     Route: 061

REACTIONS (3)
  - Intentional product use issue [Not Recovered/Not Resolved]
  - Drug effect decreased [Not Recovered/Not Resolved]
  - Erythema [Not Recovered/Not Resolved]
